FAERS Safety Report 6306373-7 (Version None)
Quarter: 2009Q3

REPORT INFORMATION
  Report Type: 
  Country: None (occurrence: None)
  Receive Date: 20090812
  Receipt Date: 20090807
  Transmission Date: 20100115
  Serious: Yes (Disabling)
  Sender: FDA-Public Use
  Company Number: GB-EISAI INC.-E3810-03051-SPO-GB

PATIENT
  Age: 75 Year
  Sex: Male

DRUGS (9)
  1. PARIET (RABEPRAZOLE) [Suspect]
     Route: 048
     Dates: start: 20060518, end: 20090708
  2. AMLODIPINE [Suspect]
     Route: 048
     Dates: start: 20050817
  3. CARVEDILOL [Suspect]
     Route: 048
     Dates: start: 20081021, end: 20090710
  4. ACETAMINOPHEN W/ CODEINE [Suspect]
     Indication: PAIN
     Dosage: UNKNOWN
     Route: 048
     Dates: start: 20070718, end: 20090306
  5. FRUSEMIDE [Suspect]
     Route: 048
     Dates: start: 20050817, end: 20090713
  6. IRBESARTAN [Suspect]
     Route: 048
     Dates: start: 20060203
  7. SIMVASTATIN [Suspect]
     Route: 048
     Dates: start: 20060203, end: 20090713
  8. ZIMOVANE [Suspect]
     Indication: INSOMNIA
     Dosage: UNKNOWN
     Route: 048
     Dates: start: 20051014
  9. FERROUS SULFATE TAB [Concomitant]

REACTIONS (2)
  - ANGIOEDEMA [None]
  - SWOLLEN TONGUE [None]
